FAERS Safety Report 8786245 (Version 3)
Quarter: 2012Q4

REPORT INFORMATION
  Report Type: 
  Country: US (occurrence: US)
  Receive Date: 20120914
  Receipt Date: 20121025
  Transmission Date: 20130627
  Serious: Yes (Hospitalization, Other)
  Sender: FDA-Public Use
  Company Number: PHHY2012US078359

PATIENT
  Age: 43 Year
  Sex: Female
  Weight: 79.37 kg

DRUGS (13)
  1. GILENYA [Suspect]
     Indication: RELAPSING-REMITTING MULTIPLE SCLEROSIS
     Dosage: 0.5 mg, QD
     Route: 048
     Dates: start: 20110316, end: 20110829
  2. ZESTRIL [Concomitant]
  3. TREXIMET [Concomitant]
  4. LISINOPRIL [Concomitant]
     Dosage: 40 mg, BID
  5. LISINOPRIL [Concomitant]
     Dosage: 40 mg, daily
  6. OMEPRAZOLE [Concomitant]
  7. XANAX [Concomitant]
     Dosage: 2 mg, TID
  8. OXYCODONE [Concomitant]
  9. PHENERGAN [Concomitant]
  10. SOMA [Concomitant]
     Dosage: 350 mg, TID
  11. PROTONIX [Concomitant]
  12. LORTAB [Concomitant]
     Dosage: 10 mg, TID
  13. MORPHINE [Concomitant]
     Dosage: 30 mg, PRN

REACTIONS (30)
  - Gastrointestinal haemorrhage [Recovering/Resolving]
  - Gastric ulcer [Recovered/Resolved]
  - Haemorrhage [Recovering/Resolving]
  - Hypersensitivity [Recovering/Resolving]
  - Melaena [Recovering/Resolving]
  - Anaemia [Recovering/Resolving]
  - Abdominal pain [Recovering/Resolving]
  - Renal failure [Recovered/Resolved]
  - Lethargy [Recovered/Resolved]
  - Hyperphosphataemia [Unknown]
  - Convulsion [Recovered/Resolved]
  - Azotaemia [Unknown]
  - Mental status changes [Recovered/Resolved]
  - Metabolic acidosis [Unknown]
  - Nausea [Recovered/Resolved]
  - Vomiting [Recovered/Resolved]
  - Hypotension [Recovered/Resolved]
  - Blood creatinine increased [Recovering/Resolving]
  - Haematocrit decreased [Recovered/Resolved]
  - Anion gap increased [Recovered/Resolved]
  - Asthenia [Recovered/Resolved]
  - Tremor [Recovered/Resolved]
  - Somnolence [Recovered/Resolved]
  - Oliguria [Recovered/Resolved]
  - Stress [Unknown]
  - White blood cell count increased [Unknown]
  - Sepsis syndrome [Recovered/Resolved]
  - Pain [Unknown]
  - Psychiatric symptom [Unknown]
  - Depression [Unknown]
